FAERS Safety Report 15093811 (Version 1)
Quarter: 2018Q2

REPORT INFORMATION
  Report Type: Report from Study
  Country: None (occurrence: DE)
  Receive Date: 20180629
  Receipt Date: 20180629
  Transmission Date: 20180711
  Serious: Yes (Congenital Anomaly, Other)
  Sender: FDA-Public Use
  Company Number: DE-BAUSCH-BL-2018-017930

PATIENT
  Sex: Male
  Weight: 2.7 kg

DRUGS (2)
  1. ENALAPRIL [Suspect]
     Active Substance: ENALAPRIL
     Indication: PRODUCT USED FOR UNKNOWN INDICATION
     Dosage: DURING GESTATIONAL 0 - 8 WEEKS
     Route: 064
  2. METOPROLOL. [Concomitant]
     Active Substance: METOPROLOL
     Indication: PRODUCT USED FOR UNKNOWN INDICATION
     Dosage: GESTATION WEEK 7 PLUS 6 - 37 PLUS 6 DAYS
     Route: 064

REACTIONS (2)
  - Foetal exposure during pregnancy [Unknown]
  - Renal dysplasia [Unknown]
